FAERS Safety Report 6417777-6 (Version None)
Quarter: 2009Q4

REPORT INFORMATION
  Report Type: 
  Country: None (occurrence: None)
  Receive Date: 20091027
  Receipt Date: 20091027
  Transmission Date: 20100525
  Serious: Yes (Hospitalization)
  Sender: FDA-Public Use
  Company Number: None

PATIENT
  Age: 60 Year
  Sex: Male
  Weight: 101 kg

DRUGS (11)
  1. ERLOTINIB [Suspect]
     Indication: PANCREATIC CARCINOMA
     Dosage: 150MG PO DAILY
     Route: 048
     Dates: start: 20090301, end: 20090825
  2. ZOLPITEM [Concomitant]
  3. MEGESTROL ACETATE [Concomitant]
  4. OXYCODONE [Concomitant]
  5. LORAZEPAM [Concomitant]
  6. OXYCODONE HCL EXTENDED-RELEASE [Concomitant]
  7. CALCIUM + VD [Concomitant]
  8. ASCORBIC ACID [Concomitant]
  9. LISINOPRIL [Concomitant]
  10. GLARGINE [Concomitant]
  11. CETIRIZINE HCL [Concomitant]

REACTIONS (4)
  - DYSPNOEA EXERTIONAL [None]
  - HAEMOGLOBIN DECREASED [None]
  - PULMONARY TOXICITY [None]
  - RECTAL HAEMORRHAGE [None]
